FAERS Safety Report 9783486 (Version 1)
Quarter: 2013Q4

REPORT INFORMATION
  Report Type: Spontaneous
  Country: US (occurrence: None)
  Receive Date: 20131223
  Receipt Date: 20131223
  Transmission Date: 20140711
  Serious: No
  Sender: FDA-Public Use
  Company Number: 2013AP010534

PATIENT
  Age: 15 Year
  Sex: Female

DRUGS (2)
  1. CARBAMAZEPINE [Suspect]
     Indication: BIPOLAR DISORDER
  2. VALPROIC ACID [Concomitant]

REACTIONS (10)
  - Drug reaction with eosinophilia and systemic symptoms [None]
  - Rash pruritic [None]
  - Pyrexia [None]
  - Headache [None]
  - Nausea [None]
  - Dizziness [None]
  - Rash maculo-papular [None]
  - Hypotension [None]
  - Hypersensitivity [None]
  - Diarrhoea [None]
